FAERS Safety Report 26004350 (Version 1)
Quarter: 2025Q4

REPORT INFORMATION
  Report Type: Spontaneous
  Country: US (occurrence: US)
  Receive Date: 20251106
  Receipt Date: 20251106
  Transmission Date: 20260117
  Serious: No
  Sender: ROCHE
  Company Number: US-ROCHE-10000423856

PATIENT
  Sex: Female

DRUGS (4)
  1. XOLAIR PFS [Suspect]
     Active Substance: OMALIZUMAB
     Indication: Idiopathic urticaria
     Dosage: (STRENGTH: 300MG/2ML)
     Route: 058
     Dates: start: 202504
  2. XOLAIR PFS [Suspect]
     Active Substance: OMALIZUMAB
  3. FASENRA [Concomitant]
     Active Substance: BENRALIZUMAB
  4. CAMZYOS [Concomitant]
     Active Substance: MAVACAMTEN

REACTIONS (2)
  - Drug ineffective [Unknown]
  - No adverse event [Unknown]
